FAERS Safety Report 24200300 (Version 1)
Quarter: 2024Q3

REPORT INFORMATION
  Report Type: Spontaneous
  Country: CH (occurrence: CH)
  Receive Date: 20240812
  Receipt Date: 20240812
  Transmission Date: 20241016
  Serious: Yes (Life-Threatening, Hospitalization, Other)
  Sender: BRISTOL MYERS SQUIBB
  Company Number: None

PATIENT
  Age: 63 Year
  Sex: Male
  Weight: 73 kg

DRUGS (7)
  1. POMALIDOMIDE [Interacting]
     Active Substance: POMALIDOMIDE
     Indication: Plasma cell myeloma
     Dosage: 4 MG 1X/DAY CYCLICAL (3 WEEKS OUT OF 4), WITH A REDUCTION IN DOSAGE SINCE FEBRUARY 2024 (DOSING OF T
     Route: 048
     Dates: start: 202201, end: 20240611
  2. POMALIDOMIDE [Interacting]
     Active Substance: POMALIDOMIDE
     Dosage: 4 MG EVERY 3 DAYS
     Route: 048
     Dates: start: 202401
  3. POMALIDOMIDE [Interacting]
     Active Substance: POMALIDOMIDE
     Dosage: 1 MG/DAY, ALWAYS FOR 3 WEEKS OUT OF 4
     Route: 048
     Dates: start: 202401
  4. POMALIDOMIDE [Interacting]
     Active Substance: POMALIDOMIDE
     Dosage: 2 MG/DAY ALWAYS FOR 3 WEEKS OUT OF 4
     Route: 048
     Dates: start: 202402
  5. DARATUMUMAB [Interacting]
     Active Substance: DARATUMUMAB
     Indication: Plasma cell myeloma
     Route: 058
     Dates: start: 202201, end: 20240611
  6. DEXAMETHASONE [Concomitant]
     Active Substance: DEXAMETHASONE
     Indication: Plasma cell myeloma
     Dosage: 20 MG ON DAYS 1-2 OF THE WEEKS OF ADMINISTRATION OF DARATUMUMAB, AND 10 MG/WEEK ON OTHER WEEKS
     Route: 048
     Dates: start: 20220211, end: 20240611
  7. DEXAMETHASONE [Concomitant]
     Active Substance: DEXAMETHASONE
     Route: 048

REACTIONS (5)
  - Progressive multifocal leukoencephalopathy [Not Recovered/Not Resolved]
  - Off label use [Unknown]
  - Drug interaction [Unknown]
  - Neutropenia [Unknown]
  - Hypogammaglobulinaemia [Unknown]

NARRATIVE: CASE EVENT DATE: 20240101
